FAERS Safety Report 22068686 (Version 3)
Quarter: 2023Q2

REPORT INFORMATION
  Report Type: Other
  Country: CN (occurrence: None)
  Receive Date: 20230307
  Receipt Date: 20230629
  Transmission Date: 20230721
  Serious: Yes (Hospitalization)
  Sender: FDA-Public Use
  Company Number: CN-ROCHE-3301268

PATIENT
  Age: 53 Year
  Sex: Female

DRUGS (6)
  1. ALECTINIB [Suspect]
     Active Substance: ALECTINIB
     Indication: Non-small cell lung cancer
     Dosage: DOSE LAST STUDY DRUG ADMIN PRIOR AE AND SAE ON 22/FEB/2023 IS 600 MG
     Route: 048
     Dates: start: 20230222
  2. ALECTINIB [Suspect]
     Active Substance: ALECTINIB
     Dosage: DOSE LAST STUDY DRUG ADMIN PRIOR AE/SAE 600 MG ON 22/FEB/2023
     Route: 048
     Dates: start: 20220401
  3. JIAN GAN LE KE LI [Concomitant]
     Route: 048
     Dates: start: 20220527
  4. LIDOCAINE HYDROCHLORIDE [Concomitant]
     Active Substance: LIDOCAINE HYDROCHLORIDE
     Route: 065
     Dates: start: 20230224, end: 20230224
  5. BICYCLOL [Concomitant]
     Active Substance: BICYCLOL
     Route: 048
     Dates: start: 20230406, end: 202305
  6. WU ZHI DI WAN [Concomitant]
     Route: 048
     Dates: start: 20230519

REACTIONS (1)
  - Pneumonia fungal [Recovering/Resolving]

NARRATIVE: CASE EVENT DATE: 20230223
